FAERS Safety Report 11148459 (Version 1)
Quarter: 2015Q2

REPORT INFORMATION
  Report Type: Spontaneous
  Country: CH (occurrence: IL)
  Receive Date: 20150529
  Receipt Date: 20150529
  Transmission Date: 20150821
  Serious: Yes (Hospitalization)
  Sender: FDA-Public Use
  Company Number: CH-LPDUSPRD-20150369

PATIENT
  Age: 70 Year
  Sex: Female

DRUGS (1)
  1. FERINJECT [Suspect]
     Active Substance: FERRIC CARBOXYMALTOSE
     Dosage: 500 MG,(FIRST DOSE)
     Route: 065

REACTIONS (5)
  - Hypophosphataemia [Unknown]
  - Blood parathyroid hormone increased [Unknown]
  - Asthenia [Unknown]
  - Pulmonary embolism [Unknown]
  - Urine phosphorus increased [Unknown]
